FAERS Safety Report 24795177 (Version 2)
Quarter: 2025Q1

REPORT INFORMATION
  Report Type: Spontaneous
  Country: US (occurrence: US)
  Receive Date: 20241231
  Receipt Date: 20250108
  Transmission Date: 20250408
  Serious: Yes (Other)
  Sender: DR REDDYS
  Company Number: US-MLMSERVICE-20241219-PI314809-00165-1

PATIENT
  Age: 77 Year
  Sex: Male

DRUGS (4)
  1. CAPECITABINE [Suspect]
     Active Substance: CAPECITABINE
     Indication: Adenocarcinoma metastatic
  2. GEMCITABINE [Suspect]
     Active Substance: GEMCITABINE
     Indication: Ductal adenocarcinoma of pancreas
     Dates: start: 201808
  3. PACLITAXEL [Suspect]
     Active Substance: PACLITAXEL
     Indication: Ductal adenocarcinoma of pancreas
     Dates: start: 201808
  4. FLUOROURACIL [Concomitant]
     Active Substance: FLUOROURACIL
     Indication: Ductal adenocarcinoma of pancreas
     Dates: start: 201904

REACTIONS (6)
  - Leukopenia [Unknown]
  - Cellulitis [Unknown]
  - Metastases to thorax [Unknown]
  - Perforation [Recovered/Resolved]
  - Afferent loop syndrome [Recovered/Resolved]
  - Anaemia [Unknown]

NARRATIVE: CASE EVENT DATE: 20180801
